FAERS Safety Report 13039413 (Version 2)
Quarter: 2016Q4

REPORT INFORMATION
  Report Type: Report from Study
  Country: US (occurrence: US)
  Receive Date: 20161219
  Receipt Date: 20161221
  Transmission Date: 20170207
  Serious: Yes (Hospitalization)
  Sender: FDA-Public Use
  Company Number: US-TAKEDA-2016MPI010641

PATIENT
  Age: 67 Year
  Sex: Female
  Weight: 48.98 kg

DRUGS (2)
  1. DEXAMETHASONE. [Suspect]
     Active Substance: DEXAMETHASONE
     Indication: PLASMA CELL MYELOMA
     Dosage: UNK
     Route: 065
  2. IXAZOMIB [Suspect]
     Active Substance: IXAZOMIB
     Indication: PLASMA CELL MYELOMA
     Dosage: 4 MG, UNK
     Route: 048
     Dates: start: 20161206

REACTIONS (6)
  - Fall [Unknown]
  - Off label use [Unknown]
  - Head injury [Unknown]
  - Cardiac disorder [Unknown]
  - Syncope [Unknown]
  - Bronchitis [Unknown]

NARRATIVE: CASE EVENT DATE: 20161210
